FAERS Safety Report 9857915 (Version 2)
Quarter: 2014Q2

REPORT INFORMATION
  Report Type: Report from Study
  Country: BR (occurrence: BR)
  Receive Date: 20140131
  Receipt Date: 20140404
  Transmission Date: 20141212
  Serious: Yes (Other)
  Sender: FDA-Public Use
  Company Number: BR-ROCHE-1342472

PATIENT
  Age: 53 Year
  Sex: Female
  Weight: 100 kg

DRUGS (3)
  1. XOLAIR [Suspect]
     Indication: ASTHMA
     Dosage: 1 AMPOULE IN 15 DAYS
     Route: 065
     Dates: start: 201310, end: 201312
  2. FORMOTEROL FUMARATE [Concomitant]
  3. FORASEQ [Concomitant]

REACTIONS (3)
  - Lung infection [Recovering/Resolving]
  - Asthma [Recovering/Resolving]
  - Fatigue [Recovering/Resolving]
